FAERS Safety Report 25231870 (Version 4)
Quarter: 2025Q2

REPORT INFORMATION
  Report Type: Spontaneous
  Country: JP (occurrence: JP)
  Receive Date: 20250423
  Receipt Date: 20250606
  Transmission Date: 20250717
  Serious: Yes (Life-Threatening)
  Sender: EISAI
  Company Number: JP-Eisai-202500761_DVG_P_1

PATIENT
  Age: 53 Year
  Sex: Male

DRUGS (1)
  1. DAYVIGO [Suspect]
     Active Substance: LEMBOREXANT
     Indication: Product used for unknown indication
     Dates: start: 20241213, end: 20241213

REACTIONS (2)
  - Altered state of consciousness [Recovered/Resolved]
  - Sleep paralysis [Recovered/Resolved]

NARRATIVE: CASE EVENT DATE: 20241213
